FAERS Safety Report 9801218 (Version 1)
Quarter: 2014Q1

REPORT INFORMATION
  Report Type: Spontaneous
  Country: US (occurrence: US)
  Receive Date: 20140107
  Receipt Date: 20140107
  Transmission Date: 20141002
  Serious: Yes (Death, Life-Threatening, Hospitalization)
  Sender: FDA-Public Use
  Company Number: US-BAYER-2014-001678

PATIENT
  Age: 42 Year
  Sex: Male

DRUGS (5)
  1. DIPHENHYDRAMINE HYDROCHLORIDE [Suspect]
  2. ETHANOL [Suspect]
  3. FENTANYL [Suspect]
  4. CLONAZEPAM [Suspect]
     Route: 048
  5. METOPROLOL [Suspect]

REACTIONS (4)
  - Toxicity to various agents [Fatal]
  - Overdose [None]
  - Brain injury [None]
  - Subarachnoid haemorrhage [None]
